FAERS Safety Report 6909517-9 (Version None)
Quarter: 2010Q3

REPORT INFORMATION
  Report Type: 
  Country: None (occurrence: None)
  Receive Date: 20100805
  Receipt Date: 20100727
  Transmission Date: 20110219
  Serious: Yes (Other)
  Sender: FDA-Public Use
  Company Number: DK-GENENTECH-301834

PATIENT
  Sex: Female

DRUGS (5)
  1. MABTHERA [Suspect]
     Indication: RHEUMATOID ARTHRITIS
     Dosage: 1000 MG, UNK
     Route: 042
     Dates: start: 20050902, end: 20050919
  2. MABTHERA [Suspect]
     Dosage: 1000 MG, UNK
     Route: 042
     Dates: start: 20080702, end: 20080716
  3. AZATHIOPRIN [Concomitant]
     Indication: PRODUCT USED FOR UNKNOWN INDICATION
     Dosage: UNK
     Dates: start: 20050404, end: 20051024
  4. AZATHIOPRIN [Concomitant]
     Dosage: UNK
     Dates: start: 20080702
  5. METHOTREXATE [Concomitant]
     Indication: PRODUCT USED FOR UNKNOWN INDICATION
     Dosage: UNK
     Route: 048
     Dates: start: 20051205

REACTIONS (1)
  - BREAST CANCER [None]
